FAERS Safety Report 11881217 (Version 6)
Quarter: 2018Q4

REPORT INFORMATION
  Report Type: Spontaneous
  Country: US (occurrence: US)
  Receive Date: 20151231
  Receipt Date: 20181102
  Transmission Date: 20190204
  Serious: Yes (Other)
  Sender: FDA-Public Use
  Company Number: US-009507513-1512USA012252

PATIENT
  Age: 75 Year
  Sex: Male
  Weight: 74.6 kg

DRUGS (4)
  1. REMERON [Suspect]
     Active Substance: MIRTAZAPINE
     Dosage: 15 MG, UNK
     Route: 048
  2. REMERON [Suspect]
     Active Substance: MIRTAZAPINE
     Indication: DEMENTIA
     Dosage: 15 MG, QD
     Route: 048
  3. REMERON [Suspect]
     Active Substance: MIRTAZAPINE
     Dosage: 7.5 MG, UNK
     Route: 048
  4. REMERON [Suspect]
     Active Substance: MIRTAZAPINE
     Dosage: 30 MG, QD
     Route: 048

REACTIONS (3)
  - Hyperglycaemia [Recovering/Resolving]
  - Hypertriglyceridaemia [Recovering/Resolving]
  - Weight increased [Recovering/Resolving]
